FAERS Safety Report 10366830 (Version 3)
Quarter: 2014Q4

REPORT INFORMATION
  Report Type: Report from Study
  Country: NL (occurrence: NL)
  Receive Date: 20140807
  Receipt Date: 20141107
  Transmission Date: 20150528
  Serious: Yes (Hospitalization)
  Sender: FDA-Public Use
  Company Number: NL-ROCHE-1440329

PATIENT
  Sex: Female
  Weight: 100 kg

DRUGS (9)
  1. FERROUS FUMARATE [Concomitant]
     Active Substance: FERROUS FUMARATE
     Indication: IRON DEFICIENCY
     Route: 048
  2. OMEPRAZOLE. [Concomitant]
     Active Substance: OMEPRAZOLE
     Indication: PROPHYLAXIS
     Route: 048
  3. MIRCERA [Suspect]
     Active Substance: PEGZEREPOETIN ALFA
     Indication: NEPHROGENIC ANAEMIA
     Dosage: 50 FLUID FOR INJECTION 176 MCG/ML WWSP 0.3 ML
     Route: 058
     Dates: start: 20140116, end: 20140603
  4. MIRTAZAPINE. [Concomitant]
     Active Substance: MIRTAZAPINE
     Route: 048
  5. MIRCERA [Suspect]
     Active Substance: PEGZEREPOETIN ALFA
     Dosage: 100 FLUID FOR INJECTION 333 MCG/ML WWSP 0.3 ML
     Route: 058
     Dates: start: 20140604, end: 20140730
  6. NOVOMIX 30 FLEXPEN [Concomitant]
     Active Substance: INSULIN ASPART
     Indication: DIABETES MELLITUS
     Route: 058
  7. MIRCERA [Suspect]
     Active Substance: PEGZEREPOETIN ALFA
     Dosage: 100 FLUID FOR INJECTION 333 MCG/ML WWSP 0.3 ML
     Route: 058
     Dates: start: 20140731
  8. BUMETANIDE. [Concomitant]
     Active Substance: BUMETANIDE
     Route: 048
  9. CARVEDILOL. [Concomitant]
     Active Substance: CARVEDILOL
     Route: 048

REACTIONS (4)
  - Enteritis [Recovered/Resolved]
  - Urinary tract infection [Recovered/Resolved]
  - Cholecystitis [Not Recovered/Not Resolved]
  - Cholelithiasis [Not Recovered/Not Resolved]

NARRATIVE: CASE EVENT DATE: 201403
